FAERS Safety Report 5282944-4 (Version None)
Quarter: 2007Q2

REPORT INFORMATION
  Report Type: 
  Country: None (occurrence: None)
  Receive Date: 20070402
  Receipt Date: 20070320
  Transmission Date: 20071010
  Serious: Yes (Other)
  Sender: FDA-Public Use
  Company Number: PHEH2007US03334

PATIENT
  Age: 73 Year
  Sex: Female
  Weight: 53.968 kg

DRUGS (4)
  1. ZOMETA [Suspect]
     Indication: METASTASES TO BONE
     Dosage: 4 MG MONTHLY
     Route: 042
     Dates: start: 19970701, end: 20060601
  2. NAVELBINE [Concomitant]
  3. AVASTIN [Concomitant]
  4. FEMARA [Concomitant]
     Dosage: UNK, QD

REACTIONS (1)
  - OSTEONECROSIS [None]
